FAERS Safety Report 7237764-8 (Version None)
Quarter: 2011Q1

REPORT INFORMATION
  Report Type: 
  Country: None (occurrence: None)
  Receive Date: 20110121
  Receipt Date: 20110119
  Transmission Date: 20110831
  Serious: Yes (Death)
  Sender: FDA-Public Use
  Company Number: PHHY2011AR04335

PATIENT
  Sex: Male

DRUGS (1)
  1. EXELON [Suspect]
     Indication: DISORIENTATION
     Dosage: 1 DF, UNK
     Route: 062
     Dates: start: 20100729

REACTIONS (1)
  - CARDIO-RESPIRATORY ARREST [None]
